FAERS Safety Report 8194636-2 (Version None)
Quarter: 2012Q1

REPORT INFORMATION
  Report Type: 
  Country: None (occurrence: None)
  Receive Date: 20120308
  Receipt Date: 20111107
  Transmission Date: 20120608
  Serious: No
  Sender: FDA-Public Use
  Company Number: US-GLAXOSMITHKLINE-A0952410A

PATIENT
  Age: 36 Year
  Sex: Female

DRUGS (1)
  1. NICORETTE [Suspect]
     Indication: PRODUCT USED FOR UNKNOWN INDICATION
     Dates: start: 20111105

REACTIONS (5)
  - MALAISE [None]
  - NAUSEA [None]
  - OVERDOSE [None]
  - PRODUCT QUALITY ISSUE [None]
  - VOMITING [None]
